FAERS Safety Report 16971753 (Version 1)
Quarter: 2019Q4

REPORT INFORMATION
  Report Type: Spontaneous
  Country: US (occurrence: US)
  Receive Date: 20191029
  Receipt Date: 20191029
  Transmission Date: 20200122
  Serious: No
  Sender: FDA-Public Use
  Company Number: US-SA-2019SA298648

PATIENT
  Age: 75 Year
  Sex: Male
  Weight: 52.16 kg

DRUGS (5)
  1. TOPICORT [Concomitant]
     Active Substance: DESOXIMETASONE
     Dosage: UNK UNK, PRN
  2. CLOBETASOL [Concomitant]
     Active Substance: CLOBETASOL
  3. ZYRTEC [Concomitant]
     Active Substance: CETIRIZINE HYDROCHLORIDE
  4. DUPIXENT [Suspect]
     Active Substance: DUPILUMAB
     Indication: DERMATITIS ATOPIC
     Dosage: 300 MG, QOW
     Dates: start: 20190601
  5. DESOXIMETASONE. [Concomitant]
     Active Substance: DESOXIMETASONE

REACTIONS (3)
  - Skin disorder [Unknown]
  - Pruritus [Unknown]
  - Pain [Unknown]
